FAERS Safety Report 8081620-2 (Version None)
Quarter: 2012Q1

REPORT INFORMATION
  Report Type: 
  Country: None (occurrence: None)
  Receive Date: 20120130
  Receipt Date: 20120116
  Transmission Date: 20120608
  Serious: Yes (Hospitalization)
  Sender: FDA-Public Use
  Company Number: US-PFIZER INC-2012021743

PATIENT
  Age: 44 Year
  Sex: Male

DRUGS (5)
  1. RESTORIL [Concomitant]
     Indication: PRODUCT USED FOR UNKNOWN INDICATION
     Dosage: UNK
     Route: 065
  2. LIBRIUM [Concomitant]
     Indication: PRODUCT USED FOR UNKNOWN INDICATION
     Dosage: UNK
     Route: 065
  3. PLANT ALKALOIDS AND OTHER NATURAL PRODUCTS [Concomitant]
     Indication: INFLAMMATORY BOWEL DISEASE
     Dosage: UNK
     Route: 065
     Dates: start: 20111221
  4. PROPECIA [Concomitant]
     Indication: PRODUCT USED FOR UNKNOWN INDICATION
     Dosage: UNK
     Route: 065
  5. IBUPROFEN [Suspect]
     Dosage: UNK
     Route: 048

REACTIONS (3)
  - ULCER HAEMORRHAGE [None]
  - CHEST PAIN [None]
  - OFF LABEL USE [None]
